FAERS Safety Report 7980209-0 (Version None)
Quarter: 2011Q4

REPORT INFORMATION
  Report Type: 
  Country: None (occurrence: None)
  Receive Date: 20111214
  Receipt Date: 20111205
  Transmission Date: 20120403
  Serious: Yes (Hospitalization, Other)
  Sender: FDA-Public Use
  Company Number: US-ASTRAZENECA-2010SE26730

PATIENT
  Age: 76 Year
  Sex: Female

DRUGS (3)
  1. NEXIUM [Suspect]
     Route: 048
  2. PRILOSEC [Suspect]
     Route: 048
  3. NEXIUM [Suspect]
     Route: 048

REACTIONS (21)
  - RETCHING [None]
  - WRONG DRUG ADMINISTERED [None]
  - SPINAL FRACTURE [None]
  - GENERAL PHYSICAL HEALTH DETERIORATION [None]
  - ROAD TRAFFIC ACCIDENT [None]
  - HERNIA [None]
  - HIP FRACTURE [None]
  - CARDIAC DISORDER [None]
  - VOMITING [None]
  - FLATULENCE [None]
  - NAUSEA [None]
  - HIATUS HERNIA [None]
  - INAPPROPRIATE SCHEDULE OF DRUG ADMINISTRATION [None]
  - DRUG DOSE OMISSION [None]
  - PELVIC FRACTURE [None]
  - CARDIAC ARREST [None]
  - BACK PAIN [None]
  - GASTROOESOPHAGEAL REFLUX DISEASE [None]
  - GAIT DISTURBANCE [None]
  - SCOLIOSIS [None]
  - DRUG EFFECT DECREASED [None]
